FAERS Safety Report 9907071 (Version 3)
Quarter: 2014Q1

REPORT INFORMATION
  Report Type: Other
  Country: US (occurrence: US)
  Receive Date: 20140218
  Receipt Date: 20140310
  Transmission Date: 20141002
  Serious: Yes (Disabling)
  Sender: FDA-Public Use
  Company Number: US-ACORDA-ACO_100030_2013

PATIENT
  Age: 70 Year
  Sex: Female

DRUGS (4)
  1. AMPYRA [Suspect]
     Indication: GAIT DISTURBANCE
     Dosage: 10 MG, BID
     Route: 065
     Dates: start: 20130918, end: 20131018
  2. TIZANIDINE [Suspect]
     Indication: MUSCLE SPASTICITY
     Dosage: 4 MG, TID
     Route: 048
  3. AMANTADINE [Concomitant]
     Indication: FATIGUE
     Dosage: 100 MG, BID
     Route: 065
  4. TOVIAZ [Concomitant]
     Indication: MICTURITION URGENCY
     Dosage: 8 MG, QD
     Route: 048

REACTIONS (2)
  - Memory impairment [Recovered/Resolved]
  - Rash [Recovered/Resolved]
